FAERS Safety Report 9773867 (Version 1)
Quarter: 2013Q4

REPORT INFORMATION
  Report Type: Spontaneous
  Country: US (occurrence: US)
  Receive Date: 20131220
  Receipt Date: 20131220
  Transmission Date: 20140711
  Serious: Yes (Hospitalization)
  Sender: FDA-Public Use
  Company Number: US-009507513-1312USA008544

PATIENT
  Age: 63 Year
  Sex: Female

DRUGS (3)
  1. MAXALT [Suspect]
     Indication: MIGRAINE
     Dosage: UNK
     Route: 048
     Dates: start: 1998, end: 2013
  2. MAXALT [Suspect]
     Dosage: 10 MG, QD
     Route: 048
     Dates: start: 20131209
  3. EXCEDRIN MIGRAINE [Concomitant]

REACTIONS (1)
  - Atrial fibrillation [Not Recovered/Not Resolved]
